FAERS Safety Report 13280713 (Version 1)
Quarter: 2017Q1

REPORT INFORMATION
  Report Type: Spontaneous
  Country: GB (occurrence: GB)
  Receive Date: 20170301
  Receipt Date: 20170301
  Transmission Date: 20170428
  Serious: Yes (Other)
  Sender: FDA-Public Use
  Company Number: GB-AUROBINDO-AUR-APL-2017-29991

PATIENT
  Age: 67 Year
  Sex: Female
  Weight: 63.5 kg

DRUGS (3)
  1. AMLODIPINE 10 MG [Suspect]
     Active Substance: AMLODIPINE BESYLATE
     Indication: HYPERTENSION
     Dosage: 10 MG, ONCE A DAY
     Route: 048
     Dates: start: 20161220, end: 20170119
  2. ACEBUTOLOL [Concomitant]
     Active Substance: ACEBUTOLOL
     Indication: PRODUCT USED FOR UNKNOWN INDICATION
     Route: 065
  3. ENALAPRIL MALEATE. [Concomitant]
     Active Substance: ENALAPRIL MALEATE
     Indication: PRODUCT USED FOR UNKNOWN INDICATION
     Route: 065

REACTIONS (3)
  - Heart rate decreased [Recovering/Resolving]
  - Heart rate irregular [Recovering/Resolving]
  - Blood pressure diastolic decreased [Recovering/Resolving]

NARRATIVE: CASE EVENT DATE: 20170114
